FAERS Safety Report 14435198 (Version 5)
Quarter: 2018Q2

REPORT INFORMATION
  Report Type: Report from Study
  Country: DE (occurrence: DE)
  Receive Date: 20180125
  Receipt Date: 20180514
  Transmission Date: 20180711
  Serious: Yes (Other)
  Sender: FDA-Public Use
  Company Number: DE-BAXTER-2018BAX002555

PATIENT
  Age: 55 Year
  Sex: Male
  Weight: 69 kg

DRUGS (94)
  1. ENDOXAN 1G [Suspect]
     Active Substance: CYCLOPHOSPHAMIDE
     Dosage: 1400 MG, UNK (INFUSION RATE 2.08 (ML/MIN))
     Route: 041
     Dates: start: 20171219, end: 20171219
  2. ENDOXAN 1G [Suspect]
     Active Substance: CYCLOPHOSPHAMIDE
     Dosage: 1400 MG, UNK (INFUSION RATE 2.08 (ML/MIN))
     Route: 041
     Dates: start: 20171128, end: 20171128
  3. RIXIMYO [Suspect]
     Active Substance: RITUXIMAB
     Dosage: 700 MG, UNK
     Route: 042
     Dates: start: 20180108, end: 20180108
  4. VINCRISTINE [Suspect]
     Active Substance: VINCRISTINE
     Dosage: DOSE RE-INTRODUCED
     Route: 065
  5. DOXORUBICIN [Suspect]
     Active Substance: DOXORUBICIN
     Indication: DIFFUSE LARGE B-CELL LYMPHOMA
     Dosage: 93 MG, UNK (INFUSION RATE 8.33 (ML/MIN))
     Route: 041
     Dates: start: 20171219, end: 20171219
  6. DOXORUBICIN [Suspect]
     Active Substance: DOXORUBICIN
     Dosage: 93 MG, UNK
     Route: 041
     Dates: start: 20180109, end: 20180109
  7. PREDNISONE. [Suspect]
     Active Substance: PREDNISONE
     Dosage: 400 MG, UNK
     Route: 048
     Dates: start: 20171128, end: 20171201
  8. MESNA. [Concomitant]
     Active Substance: MESNA
     Dosage: 2800 MG, UNK
     Route: 042
     Dates: start: 20171113, end: 20171113
  9. AMPHO-MORONAL [Concomitant]
     Active Substance: AMPHOTERICIN B
     Dosage: UNK ()
     Route: 048
     Dates: start: 20180129, end: 20180204
  10. RANITIDIN [Concomitant]
     Active Substance: RANITIDINE HYDROCHLORIDE
     Dosage: UNK ()
     Route: 042
     Dates: start: 20171109, end: 20171109
  11. RANITIDIN [Concomitant]
     Active Substance: RANITIDINE HYDROCHLORIDE
     Dosage: UNK ()
     Route: 042
     Dates: start: 20180129, end: 20180129
  12. NEULASTA [Concomitant]
     Active Substance: PEGFILGRASTIM
     Dosage: 6 MG, UNK
     Route: 058
     Dates: start: 20171130, end: 20171130
  13. NEULASTA [Concomitant]
     Active Substance: PEGFILGRASTIM
     Dosage: 6 MG, UNK
     Route: 058
     Dates: start: 20171115, end: 20171115
  14. NEULASTA [Concomitant]
     Active Substance: PEGFILGRASTIM
     Dosage: 6 MG, UNK
     Route: 058
     Dates: start: 20180201, end: 20180201
  15. NEULASTA [Concomitant]
     Active Substance: PEGFILGRASTIM
     Dosage: 6 MG, UNK
     Route: 058
     Dates: start: 20180222, end: 20180222
  16. UROMITEXAN [Concomitant]
     Active Substance: MESNA
     Dosage: 400 MG, UNK
     Route: 048
     Dates: start: 20180130, end: 20180130
  17. ENDOXAN 1G [Suspect]
     Active Substance: CYCLOPHOSPHAMIDE
     Dosage: 1400 MG, UNK
     Route: 041
     Dates: start: 20180130, end: 20180130
  18. VINCRISTINE [Suspect]
     Active Substance: VINCRISTINE
     Dosage: 2 MG, UNK
     Route: 041
     Dates: start: 20180109, end: 20180109
  19. DOXORUBICIN [Suspect]
     Active Substance: DOXORUBICIN
     Dosage: 92 MG, UNK
     Route: 041
     Dates: start: 20180130, end: 20180130
  20. DOXORUBICIN [Suspect]
     Active Substance: DOXORUBICIN
     Dosage: 93 MG, UNK, INFUSION RATE 8.1 (ML/MIN)
     Route: 041
     Dates: start: 20180220, end: 20180220
  21. PREDNISONE. [Suspect]
     Active Substance: PREDNISONE
     Indication: DIFFUSE LARGE B-CELL LYMPHOMA
     Dosage: 400 MG, UNK
     Route: 048
     Dates: start: 20171219, end: 20171222
  22. MESNA. [Concomitant]
     Active Substance: MESNA
     Dosage: 2800 UNK, UNK
     Route: 042
     Dates: start: 20171128, end: 20171128
  23. AMPHO-MORONAL [Concomitant]
     Active Substance: AMPHOTERICIN B
     Dosage: UNK, BID (2X1) (2)
     Route: 048
     Dates: start: 20180108, end: 20180114
  24. TAVEGIL [Concomitant]
     Active Substance: CLEMASTINE FUMARATE
     Dosage: UNK ()
     Route: 042
     Dates: start: 20180129, end: 20180129
  25. PARACETAMOL [Concomitant]
     Active Substance: ACETAMINOPHEN
     Indication: PROPHYLAXIS
     Dosage: 1 G, UNK
     Route: 048
     Dates: start: 20171109, end: 20171109
  26. PARACETAMOL [Concomitant]
     Active Substance: ACETAMINOPHEN
     Dosage: 1 G, UNK
     Route: 048
     Dates: start: 20171218, end: 20171218
  27. PARACETAMOL [Concomitant]
     Active Substance: ACETAMINOPHEN
     Dosage: 1 G, UNK
     Route: 048
     Dates: start: 20180108, end: 20180108
  28. RANITIDIN [Concomitant]
     Active Substance: RANITIDINE HYDROCHLORIDE
     Dosage: UNK ()
     Route: 042
     Dates: start: 20180219, end: 20180219
  29. ENDOXAN 1G [Suspect]
     Active Substance: CYCLOPHOSPHAMIDE
     Dosage: 1400 MG, UNK
     Route: 041
     Dates: start: 20180109, end: 20180109
  30. RIXIMYO [Suspect]
     Active Substance: RITUXIMAB
     Dosage: 700 MG, UNK (INFUSION RATE 1.7 (ML/MIN))
     Route: 042
     Dates: start: 20171109, end: 20171109
  31. RIXIMYO [Suspect]
     Active Substance: RITUXIMAB
     Dosage: 700 MG, UNK (INFUSION RATE 2.08 (ML/MIN))
     Route: 042
     Dates: start: 20171127, end: 20171127
  32. PREDNISOLUT [Concomitant]
     Active Substance: PREDNISOLONE
     Dosage: 100 MG, UNK
     Route: 042
     Dates: start: 20171127, end: 20171127
  33. MESNA. [Concomitant]
     Active Substance: MESNA
     Dosage: 2800 MG, UNK
     Route: 042
     Dates: start: 20180130, end: 20180130
  34. RANITIDIN [Concomitant]
     Active Substance: RANITIDINE HYDROCHLORIDE
     Dosage: UNK ()
     Route: 042
     Dates: start: 20180108, end: 20180108
  35. NEULASTA [Concomitant]
     Active Substance: PEGFILGRASTIM
     Dosage: 6 MG, UNK
     Route: 058
     Dates: start: 20180111, end: 20180111
  36. RIXIMYO [Suspect]
     Active Substance: RITUXIMAB
     Indication: DIFFUSE LARGE B-CELL LYMPHOMA
     Dosage: 700 MG, UNK (INFUSION RATE 2.08 (ML/MIN))
     Route: 042
     Dates: start: 20171218, end: 20171218
  37. RIXIMYO [Suspect]
     Active Substance: RITUXIMAB
     Dosage: DOSE RE-INTRODUCED
     Route: 042
  38. VINCRISTINE [Suspect]
     Active Substance: VINCRISTINE
     Dosage: 2 MG, UNK, INFUSION RATE 2 (ML/MIN)
     Route: 041
     Dates: start: 20180220, end: 20180220
  39. PREDNISOLUT [Concomitant]
     Active Substance: PREDNISOLONE
     Indication: PROPHYLAXIS
     Dosage: 100 MG, UNK
     Route: 042
     Dates: start: 20171102, end: 20171102
  40. PREDNISOLUT [Concomitant]
     Active Substance: PREDNISOLONE
     Dosage: 100 MG, UNK
     Route: 042
     Dates: start: 20180129, end: 20180129
  41. MESNA. [Concomitant]
     Active Substance: MESNA
     Indication: PROPHYLAXIS
     Dosage: 2800 MG, UNK
     Route: 042
     Dates: start: 20171219, end: 20171219
  42. MESNA. [Concomitant]
     Active Substance: MESNA
     Dosage: 2800 MG, UNK
     Route: 042
     Dates: start: 20180109, end: 20180109
  43. KEVATRIL [Concomitant]
     Active Substance: GRANISETRON HYDROCHLORIDE
     Indication: PROPHYLAXIS
     Dosage: 1 MG, UNK
     Route: 042
     Dates: start: 20171102, end: 20171102
  44. KEVATRIL [Concomitant]
     Active Substance: GRANISETRON HYDROCHLORIDE
     Dosage: 2 MG, UNK
     Route: 042
     Dates: start: 20171219, end: 20171219
  45. KEVATRIL [Concomitant]
     Active Substance: GRANISETRON HYDROCHLORIDE
     Dosage: 2 MG, UNK
     Route: 042
     Dates: start: 20171220, end: 20171220
  46. TAVEGIL [Concomitant]
     Active Substance: CLEMASTINE FUMARATE
     Dosage: UNK ()
     Route: 042
     Dates: start: 20171218, end: 20171218
  47. PARACETAMOL [Concomitant]
     Active Substance: ACETAMINOPHEN
     Dosage: 1 G, UNK
     Route: 048
     Dates: start: 20180129, end: 20180129
  48. RANITIDIN [Concomitant]
     Active Substance: RANITIDINE HYDROCHLORIDE
     Indication: PROPHYLAXIS
     Dosage: UNK ()
     Route: 042
     Dates: start: 20171218, end: 20171218
  49. VINCRISTINE [Suspect]
     Active Substance: VINCRISTINE
     Indication: DIFFUSE LARGE B-CELL LYMPHOMA
     Dosage: 2 MG, UNK (INFUSION RATE 2 (ML/MIN))
     Route: 041
     Dates: start: 20171128, end: 20171128
  50. VINCRISTINE [Suspect]
     Active Substance: VINCRISTINE
     Dosage: 2 MG, UNK
     Route: 042
     Dates: start: 20171102, end: 20171102
  51. DOXORUBICIN [Suspect]
     Active Substance: DOXORUBICIN
     Dosage: 93 MG, UNK (INFUSION RATE 8.33 (ML/MIN))
     Route: 041
     Dates: start: 20171128, end: 20171128
  52. DOXORUBICIN [Suspect]
     Active Substance: DOXORUBICIN
     Dosage: 93 MG, UNK (INFUSION RATE 8.3 (ML/MIN))
     Route: 041
     Dates: start: 20171113, end: 20171113
  53. KEVATRIL [Concomitant]
     Active Substance: GRANISETRON HYDROCHLORIDE
     Dosage: 2 MG, UNK
     Route: 042
     Dates: start: 20180221, end: 20180221
  54. TAGAMET [Concomitant]
     Active Substance: CIMETIDINE
     Indication: PROPHYLAXIS
     Dosage: UNK ()
     Route: 048
     Dates: start: 20171127, end: 20171127
  55. TAVEGIL [Concomitant]
     Active Substance: CLEMASTINE FUMARATE
     Dosage: UNK ()
     Route: 042
     Dates: start: 20180108, end: 20180108
  56. RIXIMYO [Suspect]
     Active Substance: RITUXIMAB
     Dosage: 700 MG, UNK, INFUSION RATE 2.08 (ML/MIN)
     Route: 041
     Dates: start: 20180219, end: 20180219
  57. VINCRISTINE [Suspect]
     Active Substance: VINCRISTINE
     Dosage: 2 MG, UNK
     Route: 041
     Dates: start: 20180130, end: 20180130
  58. PREDNISONE. [Suspect]
     Active Substance: PREDNISONE
     Dosage: DOSE RE-INTRODUCED
     Route: 048
  59. PREDNISONE. [Suspect]
     Active Substance: PREDNISONE
     Route: 048
     Dates: start: 20180220, end: 20180223
  60. PREDNISOLUT [Concomitant]
     Active Substance: PREDNISOLONE
     Dosage: 100 MG, UNK
     Route: 042
     Dates: start: 20171109, end: 20171109
  61. PREDNISOLUT [Concomitant]
     Active Substance: PREDNISOLONE
     Dosage: 100 MG, UNK
     Route: 048
     Dates: start: 20171103, end: 20171106
  62. PREDNISOLUT [Concomitant]
     Active Substance: PREDNISOLONE
     Dosage: 100 MG, UNK
     Route: 042
     Dates: start: 20180219, end: 20180219
  63. KEVATRIL [Concomitant]
     Active Substance: GRANISETRON HYDROCHLORIDE
     Dosage: 1 MG, UNK
     Route: 042
     Dates: start: 20171114, end: 20171114
  64. KEVATRIL [Concomitant]
     Active Substance: GRANISETRON HYDROCHLORIDE
     Dosage: 2 MG, UNK
     Route: 042
     Dates: start: 20171129, end: 20171129
  65. KEVATRIL [Concomitant]
     Active Substance: GRANISETRON HYDROCHLORIDE
     Dosage: 2 MG, UNK
     Route: 042
     Dates: start: 20171128, end: 20171128
  66. PARACETAMOL [Concomitant]
     Active Substance: ACETAMINOPHEN
     Dosage: 1 G, UNK
     Route: 048
     Dates: start: 20180219, end: 20180219
  67. ENDOXAN 1G [Suspect]
     Active Substance: CYCLOPHOSPHAMIDE
     Dosage: 1400 MG, UNK, INFUSION RATE 2.08 (ML/MIN)
     Route: 041
     Dates: start: 20180220, end: 20180220
  68. VINCRISTINE [Suspect]
     Active Substance: VINCRISTINE
     Dosage: 2 MG, UNK (INFUSION RATE 2 (ML/MIN))
     Route: 041
     Dates: start: 20171219, end: 20171219
  69. PREDNISONE. [Suspect]
     Active Substance: PREDNISONE
     Dosage: 400 MG, UNK
     Route: 048
     Dates: start: 20180109, end: 20180112
  70. KEVATRIL [Concomitant]
     Active Substance: GRANISETRON HYDROCHLORIDE
     Dosage: 1 MG, UNK
     Route: 042
     Dates: start: 20171113, end: 20171113
  71. KEVATRIL [Concomitant]
     Active Substance: GRANISETRON HYDROCHLORIDE
     Dosage: 2 MG, UNK
     Route: 042
     Dates: start: 20180130, end: 20180130
  72. AMPHO-MORONAL [Concomitant]
     Active Substance: AMPHOTERICIN B
     Dosage: UNK UNK, BID (2)
     Route: 048
     Dates: start: 20171218, end: 20171224
  73. AMPHO-MORONAL [Concomitant]
     Active Substance: AMPHOTERICIN B
     Dosage: UNK UNK, BID (2X1) (2)
     Route: 048
     Dates: start: 20180219, end: 20180226
  74. TAVEGIL [Concomitant]
     Active Substance: CLEMASTINE FUMARATE
     Indication: PROPHYLAXIS
     Dosage: UNK ()
     Route: 042
     Dates: start: 20171127, end: 20171127
  75. NEULASTA [Concomitant]
     Active Substance: PEGFILGRASTIM
     Indication: PROPHYLAXIS
     Dosage: 6 MG, UNK
     Route: 058
     Dates: start: 20171221, end: 20171221
  76. PANTOPRAZOLE SODIUM. [Concomitant]
     Active Substance: PANTOPRAZOLE SODIUM
     Indication: PROPHYLAXIS
     Dosage: 40 MG, UNK
     Route: 048
  77. UROMITEXAN [Concomitant]
     Active Substance: MESNA
     Dosage: 400 MG, UNK
     Route: 048
     Dates: start: 20180109, end: 20180109
  78. UROMITEXAN [Concomitant]
     Active Substance: MESNA
     Dosage: 400 MG, UNK
     Route: 048
     Dates: start: 20180220, end: 20180220
  79. ENDOXAN 1G [Suspect]
     Active Substance: CYCLOPHOSPHAMIDE
     Indication: DIFFUSE LARGE B-CELL LYMPHOMA
     Dosage: 1400 MG, UNK (INFUSION RATE 2.1 (ML/MIN))
     Route: 041
     Dates: start: 20171113, end: 20171113
  80. ENDOXAN 1G [Suspect]
     Active Substance: CYCLOPHOSPHAMIDE
     Dosage: DOSE RE-INTRODUCED
     Route: 041
  81. RIXIMYO [Suspect]
     Active Substance: RITUXIMAB
     Dosage: 700 MG, UNK
     Route: 041
     Dates: start: 20180129, end: 20180129
  82. DOXORUBICIN [Suspect]
     Active Substance: DOXORUBICIN
     Dosage: DOSE RE-INTRODUCED
     Route: 041
  83. PREDNISONE. [Suspect]
     Active Substance: PREDNISONE
     Dosage: 400 MG, UNK
     Route: 048
     Dates: start: 20171113, end: 20171116
  84. PREDNISONE. [Suspect]
     Active Substance: PREDNISONE
     Dosage: 400 MG, UNK
     Route: 048
     Dates: start: 20180130, end: 20180202
  85. PREDNISOLUT [Concomitant]
     Active Substance: PREDNISOLONE
     Dosage: 100 MG, UNK
     Route: 042
     Dates: start: 20171218, end: 20171218
  86. PREDNISOLUT [Concomitant]
     Active Substance: PREDNISOLONE
     Dosage: 100 MG, UNK
     Route: 042
     Dates: start: 20180108, end: 20180108
  87. KEVATRIL [Concomitant]
     Active Substance: GRANISETRON HYDROCHLORIDE
     Dosage: 2 MG, UNK
     Route: 042
     Dates: start: 20180220, end: 20180220
  88. KEVATRIL [Concomitant]
     Active Substance: GRANISETRON HYDROCHLORIDE
     Dosage: 2 MG, UNK
     Route: 042
     Dates: start: 20180109, end: 20180109
  89. AMPHO-MORONAL [Concomitant]
     Active Substance: AMPHOTERICIN B
     Indication: PROPHYLAXIS
     Dosage: UNK UNK, BID (2)
     Route: 048
     Dates: start: 20171127, end: 20171203
  90. AMPHO-MORONAL [Concomitant]
     Active Substance: AMPHOTERICIN B
     Dosage: UNK ()
     Route: 048
     Dates: start: 20171112, end: 20171118
  91. TAVEGIL [Concomitant]
     Active Substance: CLEMASTINE FUMARATE
     Dosage: UNK ()
     Route: 042
     Dates: start: 20171109, end: 20171109
  92. TAVEGIL [Concomitant]
     Active Substance: CLEMASTINE FUMARATE
     Dosage: UNK ()
     Route: 042
     Dates: start: 20180219, end: 20180219
  93. PARACETAMOL [Concomitant]
     Active Substance: ACETAMINOPHEN
     Dosage: 1 G, UNK
     Route: 048
     Dates: start: 20171127, end: 20171127
  94. UROMITEXAN [Concomitant]
     Active Substance: MESNA
     Indication: PROPHYLAXIS
     Dosage: 400 MG, UNK
     Route: 048
     Dates: start: 20171113, end: 20171113

REACTIONS (12)
  - Hypoaesthesia oral [Unknown]
  - Hypoaesthesia [Unknown]
  - Gait disturbance [Unknown]
  - Depression [Unknown]
  - Haemoglobin decreased [Unknown]
  - Decreased appetite [Unknown]
  - Thalamic infarction [Recovered/Resolved]
  - Red blood cell count decreased [Unknown]
  - Fibrin D dimer increased [Not Recovered/Not Resolved]
  - Fatigue [Unknown]
  - Anxiety [Unknown]
  - Tension [Unknown]

NARRATIVE: CASE EVENT DATE: 20171109
